FAERS Safety Report 25337770 (Version 1)
Quarter: 2025Q2

REPORT INFORMATION
  Report Type: Spontaneous
  Country: CA (occurrence: CA)
  Receive Date: 20250520
  Receipt Date: 20250520
  Transmission Date: 20250717
  Serious: Yes (Other)
  Sender: PFIZER
  Company Number: CA-PFIZER INC-202500104060

PATIENT
  Age: 74 Year
  Sex: Male

DRUGS (15)
  1. LIDOCAINE HYDROCHLORIDE [Suspect]
     Active Substance: LIDOCAINE HYDROCHLORIDE
  2. BISOPROLOL [Suspect]
     Active Substance: BISOPROLOL
     Route: 065
  3. CALCIUM CARBONATE [Suspect]
     Active Substance: CALCIUM CARBONATE
  4. CHOLECALCIFEROL [Suspect]
     Active Substance: CHOLECALCIFEROL
  5. DENOSUMAB [Suspect]
     Active Substance: DENOSUMAB
     Route: 058
  6. DEXAMETHASONE [Suspect]
     Active Substance: DEXAMETHASONE
     Route: 014
  7. FAMOTIDINE [Suspect]
     Active Substance: FAMOTIDINE
  8. METOCLOPRAMIDE [Suspect]
     Active Substance: METOCLOPRAMIDE
  9. MORPHINE HYDROCHLORIDE [Suspect]
     Active Substance: MORPHINE HYDROCHLORIDE
  10. IRON\VITAMINS [Suspect]
     Active Substance: IRON\VITAMINS
  11. OMEPRAZOLE [Suspect]
     Active Substance: OMEPRAZOLE
  12. ONDANSETRON HYDROCHLORIDE [Suspect]
     Active Substance: ONDANSETRON HYDROCHLORIDE
  13. POLYETHYLENE GLYCOLS [Suspect]
     Active Substance: POLYETHYLENE GLYCOLS
  14. SENNOSIDES [Suspect]
     Active Substance: SENNOSIDES
  15. FOLIC ACID [Concomitant]
     Active Substance: FOLIC ACID

REACTIONS (1)
  - Febrile neutropenia [Unknown]
